FAERS Safety Report 16315836 (Version 1)
Quarter: 2019Q2

REPORT INFORMATION
  Report Type: Spontaneous
  Country: US (occurrence: US)
  Receive Date: 20190515
  Receipt Date: 20190515
  Transmission Date: 20190711
  Serious: No
  Sender: FDA-Public Use
  Company Number: US-RIGEL PHARMACEUTICALS, INC.-2019FOS000085

PATIENT

DRUGS (1)
  1. TAVALISSE [Suspect]
     Active Substance: FOSTAMATINIB
     Indication: CHRONIC MYELOMONOCYTIC LEUKAEMIA
     Dosage: 100 MG, QD
     Route: 048
     Dates: start: 20190213

REACTIONS (6)
  - Fatigue [Unknown]
  - Product use issue [Unknown]
  - Off label use [Unknown]
  - Dyspnoea [Unknown]
  - Muscle spasms [Unknown]
  - Irritability [Unknown]
